FAERS Safety Report 7418155-3 (Version None)
Quarter: 2011Q2

REPORT INFORMATION
  Report Type: 
  Country: None (occurrence: None)
  Receive Date: 20110415
  Receipt Date: 20110401
  Transmission Date: 20111010
  Serious: Yes (Hospitalization)
  Sender: FDA-Public Use
  Company Number: DE-WATSON-2011-03434

PATIENT
  Age: 30 Year
  Sex: Female

DRUGS (1)
  1. TRELSTAR UNKNOWN STRENGTH (WATSON LABORATORIES) [Suspect]
     Indication: IN VITRO FERTILISATION
     Dosage: UNK

REACTIONS (4)
  - OVARIAN ENLARGEMENT [None]
  - ABDOMINAL DISTENSION [None]
  - OVARIAN HYPERSTIMULATION SYNDROME [None]
  - ABDOMINAL PAIN LOWER [None]
